FAERS Safety Report 5970425-1 (Version None)
Quarter: 2008Q4

REPORT INFORMATION
  Report Type: 
  Country: None (occurrence: None)
  Receive Date: 20081126
  Receipt Date: 20081120
  Transmission Date: 20090506
  Serious: Yes (Hospitalization)
  Sender: FDA-Public Use
  Company Number: FR-PFIZER INC-2008099095

PATIENT
  Sex: Male
  Weight: 15 kg

DRUGS (6)
  1. SOLU-MEDROL [Suspect]
     Indication: ASTHMA
     Dosage: TEXT:8MG/KG
     Route: 042
     Dates: start: 20081012, end: 20081015
  2. VENTOLIN [Concomitant]
  3. BECOTIDE [Concomitant]
  4. ZYRTEC [Concomitant]
  5. CLARITHROMYCIN [Concomitant]
     Dates: start: 20081001
  6. AMOXICILLIN TRIHYDRATE [Concomitant]
     Dates: start: 20081001

REACTIONS (3)
  - DUODENAL ULCER PERFORATION [None]
  - HAEMOGLOBIN DECREASED [None]
  - PERITONITIS [None]
